FAERS Safety Report 6684946-X (Version None)
Quarter: 2010Q2

REPORT INFORMATION
  Report Type: 
  Country: None (occurrence: None)
  Receive Date: 20100416
  Receipt Date: 20100408
  Transmission Date: 20101027
  Serious: Yes (Other)
  Sender: FDA-Public Use
  Company Number: DE-AMGEN-QUU395458

PATIENT
  Sex: Male
  Weight: 74 kg

DRUGS (7)
  1. NPLATE [Suspect]
     Indication: DRUG USE FOR UNKNOWN INDICATION
     Route: 058
     Dates: start: 20090909, end: 20100107
  2. PREDNISOLONE [Concomitant]
     Route: 048
  3. INSULIN [Concomitant]
  4. CAPTOHEXAL [Concomitant]
     Route: 048
  5. AMLODIPINE [Concomitant]
     Route: 048
  6. METOPROLOL TARTRATE [Concomitant]
     Route: 048
  7. FUROSEMID [Concomitant]
     Route: 048

REACTIONS (1)
  - PLATELET COUNT DECREASED [None]
